FAERS Safety Report 23477399 (Version 1)
Quarter: 2024Q1

REPORT INFORMATION
  Report Type: Spontaneous
  Country: RU (occurrence: RU)
  Receive Date: 20240204
  Receipt Date: 20240204
  Transmission Date: 20240410
  Serious: No
  Sender: FDA-Public Use
  Company Number: RU-IPSEN Group, Research and Development-2023-18622

PATIENT
  Age: 11 Year
  Sex: Female

DRUGS (2)
  1. CABOMETYX [Suspect]
     Active Substance: CABOZANTINIB S-MALATE
     Indication: Product used for unknown indication
     Dosage: CABOMETYX 20 MG 2 TIMES PER DAY
     Route: 065
  2. CABOMETYX [Suspect]
     Active Substance: CABOZANTINIB S-MALATE
     Dosage: 30 MG, 2 TIMES PER DAY
     Route: 065

REACTIONS (1)
  - Off label use [Unknown]
